FAERS Safety Report 6083277-9 (Version None)
Quarter: 2009Q1

REPORT INFORMATION
  Report Type: 
  Country: None (occurrence: None)
  Receive Date: 20090213
  Receipt Date: 20090213
  Transmission Date: 20090719
  Serious: Yes (Other)
  Sender: FDA-Public Use
  Company Number: None

PATIENT
  Age: 87 Year
  Sex: Female
  Weight: 60.3284 kg

DRUGS (1)
  1. ZIPRASIDONE HCL [Suspect]
     Indication: DEMENTIA
     Dosage: 40 MG ONCE DAILY PO
     Route: 048
     Dates: start: 20081002, end: 20090122

REACTIONS (9)
  - AGITATION [None]
  - ASTHENIA [None]
  - BLOOD CREATINE PHOSPHOKINASE INCREASED [None]
  - COGWHEEL RIGIDITY [None]
  - EXTRAPYRAMIDAL DISORDER [None]
  - HEPATIC ENZYME INCREASED [None]
  - JOINT INJURY [None]
  - LETHARGY [None]
  - PAIN [None]
